FAERS Safety Report 4946035-1 (Version None)
Quarter: 2006Q1

REPORT INFORMATION
  Report Type: 
  Country: None (occurrence: None)
  Receive Date: 20060316
  Receipt Date: 20050829
  Transmission Date: 20060701
  Serious: Yes (Hospitalization)
  Sender: FDA-Public Use
  Company Number: US-MERCK-0508USA05034

PATIENT
  Age: 56 Year
  Sex: Female
  Weight: 69 kg

DRUGS (10)
  1. VIOXX [Suspect]
     Indication: PAIN
     Route: 048
     Dates: start: 20040601, end: 20041101
  2. VIOXX [Suspect]
     Indication: EPICONDYLITIS
     Route: 048
     Dates: start: 20040601, end: 20041101
  3. EVISTA [Concomitant]
     Route: 048
  4. BENICAR [Concomitant]
     Route: 048
  5. LORAZEPAM [Concomitant]
     Route: 048
  6. LORAZEPAM [Concomitant]
     Route: 048
  7. ZOLOFT [Concomitant]
     Route: 048
  8. POTASSIUM (UNSPECIFIED) [Concomitant]
     Route: 048
  9. AMBIEN [Concomitant]
     Route: 048
  10. AMBIEN [Concomitant]
     Route: 048

REACTIONS (8)
  - ACCELERATED HYPERTENSION [None]
  - CARDIOMEGALY [None]
  - DEPRESSION [None]
  - DYSPNOEA [None]
  - HYPERLIPIDAEMIA [None]
  - HYPERTENSION [None]
  - SUPRAVENTRICULAR TACHYCARDIA [None]
  - SYNCOPE [None]
